FAERS Safety Report 7048278-2 (Version None)
Quarter: 2010Q4

REPORT INFORMATION
  Report Type: 
  Country: None (occurrence: None)
  Receive Date: 20101014
  Receipt Date: 20101014
  Transmission Date: 20110411
  Serious: Yes (Life-Threatening, Hospitalization)
  Sender: FDA-Public Use
  Company Number: None

PATIENT
  Age: 69 Year
  Sex: Male
  Weight: 52 kg

DRUGS (1)
  1. IRON GLUCONATE 62.5MG/ 5ML  SANOFI-AVENTIS [Suspect]
     Dosage: 250MG ONCE IV ONE TIME DOSE
     Route: 042
     Dates: start: 20100824, end: 20100824

REACTIONS (2)
  - ANAPHYLACTIC REACTION [None]
  - RESPIRATORY FAILURE [None]
